FAERS Safety Report 10306996 (Version 7)
Quarter: 2018Q2

REPORT INFORMATION
  Report Type: Spontaneous
  Country: US (occurrence: US)
  Receive Date: 20140715
  Receipt Date: 20180406
  Transmission Date: 20180711
  Serious: Yes (Death, Life-Threatening, Hospitalization, Other)
  Sender: FDA-Public Use
  Company Number: US-ROCHE-1435367

PATIENT
  Age: 55 Year
  Sex: Male

DRUGS (2)
  1. AVASTIN [Suspect]
     Active Substance: BEVACIZUMAB
     Indication: COLORECTAL CANCER
     Route: 042
     Dates: start: 2013
  2. XELODA [Suspect]
     Active Substance: CAPECITABINE
     Indication: COLON CANCER
     Route: 065

REACTIONS (18)
  - Abscess intestinal [Not Recovered/Not Resolved]
  - Osteonecrosis of jaw [Unknown]
  - Abscess [Fatal]
  - Fistula of small intestine [Not Recovered/Not Resolved]
  - Cardiac disorder [Unknown]
  - Ill-defined disorder [Unknown]
  - Malnutrition [Not Recovered/Not Resolved]
  - Asthenia [Not Recovered/Not Resolved]
  - Gastrointestinal infection [Not Recovered/Not Resolved]
  - Oedema peripheral [Not Recovered/Not Resolved]
  - Weight decreased [Unknown]
  - Skin fragility [Not Recovered/Not Resolved]
  - Malaise [Unknown]
  - Gastrointestinal perforation [Unknown]
  - Ascites [Not Recovered/Not Resolved]
  - Fistula [Unknown]
  - Duodenal perforation [Not Recovered/Not Resolved]
  - Catheter site discharge [Not Recovered/Not Resolved]

NARRATIVE: CASE EVENT DATE: 201406
